FAERS Safety Report 22008113 (Version 4)
Quarter: 2024Q2

REPORT INFORMATION
  Report Type: Report from Study
  Country: IE (occurrence: IE)
  Receive Date: 20230218
  Receipt Date: 20240530
  Transmission Date: 20240715
  Serious: Yes (Other)
  Sender: FDA-Public Use
  Company Number: IE-TAKEDA-2022TUS061466

PATIENT
  Age: 11 Year
  Sex: Male

DRUGS (1)
  1. HUMAN IMMUNOGLOBULIN G [Suspect]
     Active Substance: HUMAN IMMUNOGLOBULIN G
     Indication: Hypogammaglobulinaemia
     Dosage: 6 GRAM, 1/WEEK
     Route: 058
     Dates: start: 20220831

REACTIONS (5)
  - Acute lymphocytic leukaemia recurrent [Not Recovered/Not Resolved]
  - Cough [Recovered/Resolved]
  - Immunoglobulins decreased [Unknown]
  - COVID-19 [Recovering/Resolving]
  - Treatment noncompliance [Not Recovered/Not Resolved]

NARRATIVE: CASE EVENT DATE: 20220831
